FAERS Safety Report 5917590-X (Version None)
Quarter: 2008Q4

REPORT INFORMATION
  Report Type: 
  Country: None (occurrence: None)
  Receive Date: 20081010
  Receipt Date: 20081010
  Transmission Date: 20090506
  Serious: Yes (Hospitalization)
  Sender: FDA-Public Use
  Company Number: None

PATIENT
  Sex: Female
  Weight: 72 kg

DRUGS (6)
  1. CISPLATIN [Suspect]
     Dosage: 87 MG
  2. DOXORUBICIN HYDROCHLORIDE [Suspect]
     Dosage: 78 MG
  3. TAXOL [Suspect]
     Dosage: 277 MG
  4. NEULASTA [Suspect]
     Dosage: 6 MG
  5. ALDACTAZIDE [Concomitant]
  6. MIRAPEX [Concomitant]

REACTIONS (3)
  - BLOOD CREATININE INCREASED [None]
  - CREATININE RENAL CLEARANCE DECREASED [None]
  - NEUTROPHIL COUNT DECREASED [None]
